FAERS Safety Report 16005585 (Version 1)
Quarter: 2019Q1

REPORT INFORMATION
  Report Type: Spontaneous
  Country: US (occurrence: US)
  Receive Date: 20190226
  Receipt Date: 20190226
  Transmission Date: 20190418
  Serious: No
  Sender: FDA-Public Use
  Company Number: US-ASTRAZENECA-2019SE28479

PATIENT
  Sex: Female
  Weight: 63.5 kg

DRUGS (10)
  1. PROAIR HFA [Concomitant]
     Active Substance: ALBUTEROL SULFATE
     Indication: WHEEZING
     Dosage: AS REQUIRED
     Route: 055
     Dates: start: 2017
  2. FLUTICASONE FUROATE [Concomitant]
     Active Substance: FLUTICASONE FUROATE
     Indication: EMPHYSEMA
     Route: 055
     Dates: start: 2018
  3. DALIRESP [Suspect]
     Active Substance: ROFLUMILAST
     Indication: EMPHYSEMA
     Route: 048
     Dates: start: 20190211
  4. SPIRIVA [Concomitant]
     Active Substance: TIOTROPIUM BROMIDE MONOHYDRATE
     Indication: CHRONIC OBSTRUCTIVE PULMONARY DISEASE
     Route: 055
     Dates: start: 2015
  5. SPIRIVA [Concomitant]
     Active Substance: TIOTROPIUM BROMIDE MONOHYDRATE
     Indication: EMPHYSEMA
     Route: 055
     Dates: start: 2015
  6. FLUTICASONE FUROATE [Concomitant]
     Active Substance: FLUTICASONE FUROATE
     Indication: ASTHMA
     Route: 055
     Dates: start: 2018
  7. DALIRESP [Suspect]
     Active Substance: ROFLUMILAST
     Indication: CHRONIC OBSTRUCTIVE PULMONARY DISEASE
     Route: 048
     Dates: start: 20190211
  8. DALIRESP [Suspect]
     Active Substance: ROFLUMILAST
     Indication: ASTHMA
     Route: 048
     Dates: start: 20190211
  9. SPIRIVA [Concomitant]
     Active Substance: TIOTROPIUM BROMIDE MONOHYDRATE
     Indication: ASTHMA
     Route: 055
     Dates: start: 2015
  10. FLUTICASONE FUROATE [Concomitant]
     Active Substance: FLUTICASONE FUROATE
     Indication: CHRONIC OBSTRUCTIVE PULMONARY DISEASE
     Route: 055
     Dates: start: 2018

REACTIONS (3)
  - Diarrhoea [Not Recovered/Not Resolved]
  - Abdominal pain upper [Not Recovered/Not Resolved]
  - Headache [Not Recovered/Not Resolved]

NARRATIVE: CASE EVENT DATE: 20190214
